FAERS Safety Report 14630601 (Version 2)
Quarter: 2018Q2

REPORT INFORMATION
  Report Type: Spontaneous
  Country: US (occurrence: US)
  Receive Date: 20180313
  Receipt Date: 20180404
  Transmission Date: 20180711
  Serious: No
  Sender: FDA-Public Use
  Company Number: US-GLAXOSMITHKLINE-US2018GSK041668

PATIENT
  Age: 33 Year
  Sex: Female
  Weight: 79.37 kg

DRUGS (1)
  1. NUCALA [Suspect]
     Active Substance: MEPOLIZUMAB
     Indication: PRODUCT USED FOR UNKNOWN INDICATION
     Dosage: 100 MG, CYC
     Route: 058
     Dates: start: 20180206

REACTIONS (4)
  - Musculoskeletal stiffness [Unknown]
  - Injected limb mobility decreased [Unknown]
  - Neck pain [Unknown]
  - Emergency care [Unknown]

NARRATIVE: CASE EVENT DATE: 20180307
